FAERS Safety Report 17799735 (Version 1)
Quarter: 2020Q2

REPORT INFORMATION
  Report Type: Report from Study
  Country: US (occurrence: US)
  Receive Date: 20200518
  Receipt Date: 20200518
  Transmission Date: 20200714
  Serious: Yes (Hospitalization)
  Sender: FDA-Public Use
  Company Number: US-EXELIXIS-CABO-20028210

PATIENT
  Age: 63 Year
  Sex: Female

DRUGS (1)
  1. CABOMETYX [Suspect]
     Active Substance: CABOZANTINIB S-MALATE
     Indication: PRODUCT USED FOR UNKNOWN INDICATION
     Dosage: 40 MG, QD
     Route: 048
     Dates: start: 201906

REACTIONS (5)
  - Diarrhoea [Unknown]
  - Urinary tract infection [Unknown]
  - Headache [Unknown]
  - Vomiting [Unknown]
  - Urinary bladder polyp [Unknown]

NARRATIVE: CASE EVENT DATE: 20200401
